FAERS Safety Report 7140456 (Version 7)
Quarter: 2014Q2

REPORT INFORMATION
  Report Type: Spontaneous
  Country: US (occurrence: US)
  Receive Date: 20091006
  Receipt Date: 20140407
  Transmission Date: 20141212
  Serious: Yes (Hospitalization, Other)
  Sender: FDA-Public Use
  Company Number: US-ALEXION-A200900789

PATIENT
  Age: 29 Year
  Sex: Male

DRUGS (2)
  1. SOLIRIS [Suspect]
     Indication: PAROXYSMAL NOCTURNAL HAEMOGLOBINURIA
     Dosage: UNK
     Route: 042
     Dates: start: 20090625, end: 20090625
  2. ATG                                /00575401/ [Suspect]

REACTIONS (9)
  - Pneumonia [Unknown]
  - Sinusitis [Unknown]
  - Leukopenia [Unknown]
  - Facial bones fracture [Unknown]
  - Transfusion [Unknown]
  - Platelet transfusion [Unknown]
  - Ear infection [Unknown]
  - Full blood count decreased [Unknown]
  - Haemoglobin decreased [Unknown]
